FAERS Safety Report 15907076 (Version 1)
Quarter: 2019Q1

REPORT INFORMATION
  Report Type: Spontaneous
  Country: DE (occurrence: DE)
  Receive Date: 20190204
  Receipt Date: 20190204
  Transmission Date: 20190417
  Serious: Yes (Hospitalization)
  Sender: FDA-Public Use
  Company Number: DE-ASTRAZENECA-2019SE19648

PATIENT
  Age: 13 Month
  Sex: Male
  Weight: 9.9 kg

DRUGS (1)
  1. SYNAGIS [Suspect]
     Active Substance: PALIVIZUMAB
     Indication: IMMUNISATION
     Dosage: 1.49ML UNKNOWN
     Route: 030
     Dates: start: 20190114

REACTIONS (6)
  - Dependence on respirator [Unknown]
  - Dyspnoea [Unknown]
  - Cardiac massage [Unknown]
  - Pallor [Unknown]
  - Respiratory arrest [Unknown]
  - Cyanosis [Unknown]

NARRATIVE: CASE EVENT DATE: 20190114
